FAERS Safety Report 21075013 (Version 17)
Quarter: 2023Q1

REPORT INFORMATION
  Report Type: Report from Study
  Country: KR (occurrence: None)
  Receive Date: 20220713
  Receipt Date: 20230110
  Transmission Date: 20230417
  Serious: Yes (Hospitalization)
  Sender: FDA-Public Use
  Company Number: KR-Eisai Medical Research-EC-2022-118813

PATIENT
  Age: 64 Year
  Sex: Male
  Weight: 58.1 kg

DRUGS (12)
  1. LENVATINIB [Suspect]
     Active Substance: LENVATINIB
     Indication: Clear cell renal cell carcinoma
     Route: 048
     Dates: start: 20220520, end: 20220704
  2. LENVATINIB [Suspect]
     Active Substance: LENVATINIB
     Dosage: STARTING DOSAGE OF 20 MG, FLUCTUATED DOSAGE.
     Route: 048
     Dates: start: 20220729
  3. QUAVONLIMAB [Suspect]
     Active Substance: QUAVONLIMAB
     Indication: Clear cell renal cell carcinoma
     Dosage: MK-1308 A 425 MG CONTAIN QUAVONLIMAB (MK-1308) 25 MG + PEMBROLIZUMAB (MK-3475) 400 MG
     Route: 042
     Dates: start: 20220520, end: 20220628
  4. ROSUVASTATIN [Concomitant]
     Active Substance: ROSUVASTATIN
     Dates: start: 201505, end: 20220831
  5. EXFORGE [Concomitant]
     Active Substance: AMLODIPINE BESYLATE\VALSARTAN
     Dates: start: 202005, end: 20220928
  6. FUSIMED [FUSIDATE SODIUM] [Concomitant]
     Dates: start: 20220610, end: 20220729
  7. FEXONADINE [Concomitant]
     Dates: start: 20220621, end: 20220627
  8. HEMOREX [PRAMOCAINE HYDROCHLORIDE] [Concomitant]
     Dates: start: 20220621, end: 20220729
  9. HEXAMEDIN [Concomitant]
     Route: 061
     Dates: start: 20220621, end: 20220730
  10. SYNACHTEN [Concomitant]
     Dates: start: 20220628, end: 20220628
  11. HARNAL [Concomitant]
     Active Substance: TAMSULOSIN HYDROCHLORIDE
     Dates: start: 20220621, end: 20220702
  12. PEMBROLIZUMAB [Suspect]
     Active Substance: PEMBROLIZUMAB

REACTIONS (1)
  - Interstitial lung disease [Recovered/Resolved]

NARRATIVE: CASE EVENT DATE: 20220628
